FAERS Safety Report 5008571-1 (Version None)
Quarter: 2006Q2

REPORT INFORMATION
  Report Type: 
  Country: None (occurrence: None)
  Receive Date: 20060522
  Receipt Date: 20060522
  Transmission Date: 20061013
  Serious: Yes (Life-Threatening, Hospitalization, Disabling)
  Sender: FDA-Public Use
  Company Number: None

PATIENT
  Age: 37 Year
  Sex: Female
  Weight: 56.6996 kg

DRUGS (2)
  1. DEMEROL [Suspect]
     Indication: PAIN
     Dates: start: 20040203, end: 20040205
  2. PCA PUMP TORRANCE MEMERIAL MEDICAL CENTER [Suspect]

REACTIONS (9)
  - BLOOD PRESSURE DECREASED [None]
  - DRUG ADMINISTRATION ERROR [None]
  - HYPOXIA [None]
  - INCORRECT DOSE ADMINISTERED [None]
  - LETHARGY [None]
  - MEDICATION ERROR [None]
  - NARCOTIC INTOXICATION [None]
  - NERVOUS SYSTEM DISORDER [None]
  - OVERDOSE [None]
